FAERS Safety Report 13603675 (Version 1)
Quarter: 2017Q2

REPORT INFORMATION
  Report Type: Spontaneous
  Country: IT (occurrence: IT)
  Receive Date: 20170601
  Receipt Date: 20170601
  Transmission Date: 20170830
  Serious: Yes (Death, Hospitalization, Other)
  Sender: FDA-Public Use
  Company Number: IT-MYLANLABS-2017M1031928

PATIENT

DRUGS (3)
  1. OXYGEN. [Concomitant]
     Active Substance: OXYGEN
     Indication: CHRONIC RESPIRATORY FAILURE
     Dosage: UNK
     Route: 055
  2. AZITHROMYCIN ANHYDROUS. [Suspect]
     Active Substance: AZITHROMYCIN ANHYDROUS
     Indication: LUNG DISORDER
     Dosage: 500 MG, QOD
     Route: 048
     Dates: start: 20170302, end: 20170503
  3. DELTACORTENE [Concomitant]
     Active Substance: PREDNISONE
     Indication: LUNG DISORDER
     Dosage: 25 MG, UNK
     Route: 048

REACTIONS (4)
  - Jaundice [Fatal]
  - Hepatic enzyme increased [Fatal]
  - Drug use disorder [Unknown]
  - Cholelithiasis [Fatal]

NARRATIVE: CASE EVENT DATE: 20170507
